FAERS Safety Report 11570582 (Version 1)
Quarter: 2015Q3

REPORT INFORMATION
  Report Type: Spontaneous
  Country: US (occurrence: US)
  Receive Date: 20150929
  Receipt Date: 20150929
  Transmission Date: 20151125
  Serious: No
  Sender: FDA-Public Use
  Company Number: US-009507513-1509USA012450

PATIENT
  Sex: Female
  Weight: 77.55 kg

DRUGS (1)
  1. NEXPLANON [Suspect]
     Active Substance: ETONOGESTREL
     Indication: CONTRACEPTION
     Dosage: UNK, 3 YEARS, LEFT ARM
     Route: 059
     Dates: start: 20140716

REACTIONS (3)
  - Abdominal distension [Unknown]
  - Headache [Unknown]
  - Abdominal pain upper [Unknown]
